FAERS Safety Report 19276835 (Version 2)
Quarter: 2021Q3

REPORT INFORMATION
  Report Type: Report from Study
  Country: US (occurrence: US)
  Receive Date: 20210519
  Receipt Date: 20210809
  Transmission Date: 20211014
  Serious: No
  Sender: FDA-Public Use
  Company Number: NVSC2021US104956

PATIENT
  Sex: Male

DRUGS (1)
  1. COSENTYX [Suspect]
     Active Substance: SECUKINUMAB
     Indication: PSORIASIS
     Dosage: 300 MG, QW
     Route: 058
     Dates: start: 202104

REACTIONS (6)
  - Dry eye [Unknown]
  - Nail growth abnormal [Unknown]
  - Erythema [Unknown]
  - Productive cough [Unknown]
  - Peripheral swelling [Unknown]
  - Arthralgia [Unknown]
